FAERS Safety Report 24437264 (Version 3)
Quarter: 2024Q4

REPORT INFORMATION
  Report Type: Spontaneous
  Country: US (occurrence: US)
  Receive Date: 20241015
  Receipt Date: 20241128
  Transmission Date: 20250115
  Serious: Yes (Hospitalization, Other)
  Sender: SANDOZ
  Company Number: US-INCYTE CORPORATION-2024IN010409

PATIENT
  Age: 65 Year
  Sex: Female

DRUGS (4)
  1. JAKAFI [Suspect]
     Active Substance: RUXOLITINIB
     Indication: Myelodysplastic syndrome
     Dosage: 10 MG, BID
     Route: 048
     Dates: start: 20240912
  2. LEVOFLOXACIN [Suspect]
     Active Substance: LEVOFLOXACIN
     Indication: Product used for unknown indication
     Dosage: UNK
     Route: 065
  3. PREDNISONE [Suspect]
     Active Substance: PREDNISONE
     Indication: Product used for unknown indication
     Dosage: 40 MG
     Route: 065
  4. VALGANCICLOVIR [Suspect]
     Active Substance: VALGANCICLOVIR
     Indication: Viral load increased
     Dosage: 900 MILLIGRAM, BID (2 X 450 MG IN MORNING, 2 X 450 MG IN EVENING)
     Route: 065

REACTIONS (10)
  - Serotonin syndrome [Unknown]
  - Pneumonia [Unknown]
  - Oxygen saturation decreased [Unknown]
  - Viral load increased [Unknown]
  - Decreased activity [Unknown]
  - Swollen tongue [Unknown]
  - Dysphagia [Unknown]
  - Pain [Unknown]
  - Depression [Unknown]
  - Off label use [Unknown]

NARRATIVE: CASE EVENT DATE: 20240912
